FAERS Safety Report 18240944 (Version 1)
Quarter: 2020Q3

REPORT INFORMATION
  Report Type: Spontaneous
  Country: US (occurrence: US)
  Receive Date: 20200905
  Receipt Date: 20200905
  Transmission Date: 20201103
  Serious: Yes (Disabling)
  Sender: FDA-Public Use
  Company Number: None

PATIENT
  Age: 52 Year
  Sex: Female
  Weight: 54 kg

DRUGS (7)
  1. DULOXETINE. [Suspect]
     Active Substance: DULOXETINE
     Indication: BACK PAIN
     Dosage: ?          QUANTITY:1 CAPSULE(S);?
     Route: 048
     Dates: start: 20191101, end: 20200717
  2. GABAPENTIN. [Concomitant]
     Active Substance: GABAPENTIN
  3. DAILY MULTI VITAMIN [Concomitant]
  4. MIRENA [Concomitant]
     Active Substance: LEVONORGESTREL
  5. DULOXETINE. [Suspect]
     Active Substance: DULOXETINE
     Indication: ANXIETY
     Dosage: ?          QUANTITY:1 CAPSULE(S);?
     Route: 048
     Dates: start: 20191101, end: 20200717
  6. VITAMIN C [Concomitant]
     Active Substance: ASCORBIC ACID
  7. VITAMIN D [Concomitant]
     Active Substance: VITAMIN D NOS

REACTIONS (7)
  - Fatigue [None]
  - Irritability [None]
  - Nausea [None]
  - Headache [None]
  - Vertigo [None]
  - Withdrawal syndrome [None]
  - Therapy interrupted [None]

NARRATIVE: CASE EVENT DATE: 20200618
